FAERS Safety Report 9320093 (Version 1)
Quarter: 2013Q2

REPORT INFORMATION
  Report Type: Spontaneous
  Country: AU (occurrence: AU)
  Receive Date: 20130530
  Receipt Date: 20130530
  Transmission Date: 20140414
  Serious: Yes (Life-Threatening)
  Sender: FDA-Public Use
  Company Number: AU-BAXTER-2013BAX019664

PATIENT
  Sex: Female
  Weight: 60 kg

DRUGS (4)
  1. BAXTER 5% GLUCOSE 100ML INJECTION BP BAG AHB0087 AHB0094 [Suspect]
     Indication: MEDICATION DILUTION
     Route: 042
  2. CAELYX [Suspect]
     Indication: CHEMOTHERAPY
     Dosage: 20MG/10ML
     Route: 042
  3. CAELYX [Suspect]
     Indication: BREAST CANCER METASTATIC
     Dosage: 50MG/25ML
     Route: 042
  4. CAELYX [Suspect]
     Dosage: 50MG/25ML
     Route: 042

REACTIONS (1)
  - Anaphylactic reaction [Unknown]
